FAERS Safety Report 15890707 (Version 1)
Quarter: 2019Q1

REPORT INFORMATION
  Report Type: Spontaneous
  Country: CA (occurrence: CA)
  Receive Date: 20190130
  Receipt Date: 20190130
  Transmission Date: 20190417
  Serious: Yes (Other)
  Sender: FDA-Public Use
  Company Number: CA-PFIZER INC-2019041595

PATIENT

DRUGS (2)
  1. IBRANCE [Suspect]
     Active Substance: PALBOCICLIB
  2. LETROZOLE. [Concomitant]
     Active Substance: LETROZOLE

REACTIONS (1)
  - Gastrointestinal perforation [Unknown]
